FAERS Safety Report 7259544-X (Version None)
Quarter: 2011Q1

REPORT INFORMATION
  Report Type: 
  Country: None (occurrence: None)
  Receive Date: 20110130
  Receipt Date: 20101105
  Transmission Date: 20110831
  Serious: No
  Sender: FDA-Public Use
  Company Number: PR-ABBOTT-10P-131-0678249-00

PATIENT
  Sex: Female
  Weight: 92.162 kg

DRUGS (6)
  1. HUMIRA [Suspect]
     Route: 058
     Dates: start: 20101013
  2. METFORMIN [Concomitant]
     Indication: BLOOD GLUCOSE ABNORMAL
     Dosage: 1 TABLET AFTER BREAKFAST
     Route: 048
  3. HUMIRA [Suspect]
     Route: 058
     Dates: start: 20101027
  4. SYNTHROID [Concomitant]
     Indication: HYPOTHYROIDISM
     Route: 048
  5. LOPID [Concomitant]
     Indication: BLOOD TRIGLYCERIDES
     Dosage: ONE TABLET IN THE AM AND ONE IN THE PM
     Route: 048
  6. HUMIRA [Suspect]
     Indication: PSORIASIS
     Route: 058
     Dates: start: 20101006

REACTIONS (5)
  - HEADACHE [None]
  - DRY MOUTH [None]
  - FATIGUE [None]
  - INFLUENZA LIKE ILLNESS [None]
  - OLIGODIPSIA [None]
